FAERS Safety Report 21926688 (Version 1)
Quarter: 2023Q1

REPORT INFORMATION
  Report Type: Spontaneous
  Country: US (occurrence: US)
  Receive Date: 20230130
  Receipt Date: 20230130
  Transmission Date: 20230417
  Serious: No
  Sender: FDA-Public Use
  Company Number: US-009507513-2301USA003771

PATIENT
  Age: 40 Year
  Sex: Female

DRUGS (2)
  1. TEMODAR [Interacting]
     Active Substance: TEMOZOLOMIDE
     Indication: Astrocytoma malignant
  2. SIPONIMOD [Interacting]
     Active Substance: SIPONIMOD
     Indication: Multiple sclerosis

REACTIONS (2)
  - Drug interaction [Unknown]
  - Product use in unapproved indication [Unknown]
